FAERS Safety Report 6856404-0 (Version None)
Quarter: 2010Q3

REPORT INFORMATION
  Report Type: 
  Country: None (occurrence: None)
  Receive Date: 20100719
  Receipt Date: 20100713
  Transmission Date: 20110219
  Serious: Yes (Hospitalization)
  Sender: FDA-Public Use
  Company Number: GB-PFIZER INC-2010087505

PATIENT
  Age: 58 Year
  Sex: Male

DRUGS (8)
  1. SUNITINIB MALATE [Suspect]
     Indication: METASTATIC RENAL CELL CARCINOMA
     Dosage: 25 MG, 1X/DAY
     Route: 048
     Dates: start: 20060801
  2. TAZOCIN [Concomitant]
     Dosage: UNK
     Dates: start: 20070628, end: 20070703
  3. GENTAMICIN [Concomitant]
     Dosage: UNK
     Dates: start: 20070629, end: 20070703
  4. LOPERAMIDE [Concomitant]
     Dosage: UNK
     Dates: start: 20070501
  5. PREDNISOLONE [Concomitant]
     Dosage: UNK
     Dates: start: 20070201
  6. PARACETAMOL [Concomitant]
     Dosage: UNK
     Dates: start: 20070201
  7. LANSOPRAZOLE [Concomitant]
     Dosage: UNK
     Dates: start: 20070201
  8. ORAMORPH SR [Concomitant]
     Dosage: UNK
     Dates: start: 20070201

REACTIONS (2)
  - GASTRITIS [None]
  - SEPSIS [None]
